FAERS Safety Report 4706826-9 (Version None)
Quarter: 2005Q3

REPORT INFORMATION
  Report Type: 
  Country: None (occurrence: None)
  Receive Date: 20050705
  Receipt Date: 20050622
  Transmission Date: 20060218
  Serious: Yes (Other)
  Sender: FDA-Public Use
  Company Number: 2005092109

PATIENT
  Sex: Male

DRUGS (5)
  1. NARDIL [Suspect]
     Indication: PANIC ATTACK
     Dosage: 60 MG (15 MG, 2 IN 1 D) ORAL
     Route: 048
     Dates: start: 19890601
  2. VALIUM [Concomitant]
  3. ATENOLOL [Concomitant]
  4. VICODIN [Concomitant]
  5. ROBAXIN [Concomitant]

REACTIONS (7)
  - ANXIETY [None]
  - FLUID RETENTION [None]
  - HERNIA [None]
  - MUSCLE SPASMS [None]
  - MUSCLE TIGHTNESS [None]
  - TENSION [None]
  - WEIGHT INCREASED [None]
